FAERS Safety Report 5977737-6 (Version None)
Quarter: 2008Q4

REPORT INFORMATION
  Report Type: 
  Country: None (occurrence: None)
  Receive Date: 20081203
  Receipt Date: 20081125
  Transmission Date: 20090506
  Serious: Yes (Hospitalization, Other)
  Sender: FDA-Public Use
  Company Number: CA-ASTRAZENECA-2008UW26423

PATIENT
  Sex: Male

DRUGS (6)
  1. CRESTOR [Suspect]
     Route: 048
     Dates: start: 20081014
  2. PLAVIX [Concomitant]
     Route: 048
     Dates: start: 20081001
  3. ASPIRIN [Concomitant]
     Route: 048
     Dates: start: 20081001
  4. ALTACE [Concomitant]
     Route: 048
     Dates: start: 20081001
  5. INSULIN [Concomitant]
  6. COLACE [Concomitant]
     Dates: start: 20070101

REACTIONS (2)
  - HEPATIC STEATOSIS [None]
  - RECTAL HAEMORRHAGE [None]
